FAERS Safety Report 19957625 (Version 4)
Quarter: 2025Q4

REPORT INFORMATION
  Report Type: Spontaneous
  Country: EU (occurrence: EU)
  Receive Date: 20211014
  Receipt Date: 20251015
  Transmission Date: 20260117
  Serious: Yes (Hospitalization)
  Sender: MYLAN
  Company Number: None

PATIENT
  Age: 60 Year
  Sex: Male
  Weight: 135 kg

DRUGS (14)
  1. ACETAMINOPHEN [Suspect]
     Active Substance: ACETAMINOPHEN
     Indication: Pain
     Dosage: UNK
     Dates: start: 20210512, end: 20210614
  2. LANSOPRAZOLE [Suspect]
     Active Substance: LANSOPRAZOLE
     Indication: Product used for unknown indication
     Dosage: 15 MILLIGRAM, QD
     Dates: start: 20210512, end: 20210609
  3. CEFEPIME [Suspect]
     Active Substance: CEFEPIME HYDROCHLORIDE
     Indication: Device related infection
     Dosage: 2 GRAM, Q8H
     Dates: start: 20210512, end: 20210517
  4. TEICOPLANIN [Suspect]
     Active Substance: TEICOPLANIN
     Indication: Device related infection
     Dosage: 6 MILLIGRAM/KILOGRAM, BID
     Dates: start: 20210602, end: 20210609
  5. TEICOPLANIN [Suspect]
     Active Substance: TEICOPLANIN
     Dosage: 6 MILLIGRAM/KILOGRAM, QD
     Dates: start: 20210609, end: 20210615
  6. RIFAMPIN [Suspect]
     Active Substance: RIFAMPIN
     Indication: Device related infection
     Dosage: 600 MILLIGRAM
     Dates: start: 20210602, end: 20210615
  7. ENOXAPARIN SODIUM [Suspect]
     Active Substance: ENOXAPARIN SODIUM
     Indication: Thrombosis prophylaxis
     Dosage: 0.4 MILLILITER
     Dates: start: 20210512, end: 20210614
  8. ENOXAPARIN SODIUM [Suspect]
     Active Substance: ENOXAPARIN SODIUM
     Dosage: 0.6 MILLILITER, QD
     Dates: start: 20210622
  9. DAPTOMYCIN [Suspect]
     Active Substance: DAPTOMYCIN
     Indication: Device related infection
     Dosage: 1 GRAM, QD
     Dates: start: 20210512, end: 20210601
  10. DAPTOMYCIN [Suspect]
     Active Substance: DAPTOMYCIN
     Dosage: 1 GRAM, QD
     Dates: start: 20210615
  11. KARDEGIC [Suspect]
     Active Substance: ASPIRIN DL-LYSINE
     Indication: Myocardial ischaemia
     Dosage: 75 MILLIGRAM, QD (POWDER FOR ORAL SOLUTION IN SACHET)
     Dates: start: 20210602, end: 20210613
  12. KARDEGIC [Suspect]
     Active Substance: ASPIRIN DL-LYSINE
     Dosage: 75 MILLIGRAM, QD
     Dates: start: 20210622
  13. KARDEGIC [Suspect]
     Active Substance: ASPIRIN DL-LYSINE
     Dosage: 75 MILLIGRAM, QD
     Dates: end: 20210614
  14. CLOPIDOGREL HYDROCHLORIDE [Concomitant]
     Active Substance: CLOPIDOGREL HYDROCHLORIDE
     Indication: Myocardial ischaemia
     Dosage: 75 MILLIGRAM, QD
     Dates: end: 2021

REACTIONS (2)
  - Thrombocytopenia [Recovering/Resolving]
  - Acute kidney injury [Not Recovered/Not Resolved]

NARRATIVE: CASE EVENT DATE: 20210612
